FAERS Safety Report 9603883 (Version 1)
Quarter: 2013Q4

REPORT INFORMATION
  Report Type: Spontaneous
  Country: US (occurrence: US)
  Receive Date: 20131008
  Receipt Date: 20131008
  Transmission Date: 20140711
  Serious: Yes (Hospitalization, Other)
  Sender: FDA-Public Use
  Company Number: US-BIOGENIDEC-2013BI095630

PATIENT
  Sex: Female
  Weight: 63 kg

DRUGS (10)
  1. AVONEX [Suspect]
     Indication: MULTIPLE SCLEROSIS
     Route: 030
     Dates: start: 19970701
  2. TRAZODONE HCL [Concomitant]
  3. SYNTHROID [Concomitant]
  4. DITROPAN [Concomitant]
  5. PREDNISONE [Concomitant]
  6. PREDNISONE [Concomitant]
  7. PREDNISONE [Concomitant]
  8. PREDNISONE [Concomitant]
  9. PREDNISONE [Concomitant]
  10. IBUPROFEN [Concomitant]

REACTIONS (2)
  - Atrial fibrillation [Unknown]
  - Multiple sclerosis relapse [Unknown]
